FAERS Safety Report 12830505 (Version 1)
Quarter: 2016Q4

REPORT INFORMATION
  Report Type: Spontaneous
  Country: US (occurrence: US)
  Receive Date: 20161007
  Receipt Date: 20161007
  Transmission Date: 20170207
  Serious: No
  Sender: FDA-Public Use
  Company Number: US-SA-2016SA147402

PATIENT
  Age: 34 Year
  Sex: Female

DRUGS (7)
  1. ADVIL [Concomitant]
     Active Substance: IBUPROFEN
  2. BIOTIN [Concomitant]
     Active Substance: BIOTIN
  3. VITAMIN D [Concomitant]
     Active Substance: CHOLECALCIFEROL
  4. LORAZEPAM. [Concomitant]
     Active Substance: LORAZEPAM
  5. IMODIUM A-D [Concomitant]
     Active Substance: LOPERAMIDE HYDROCHLORIDE
  6. LEXAPRO [Concomitant]
     Active Substance: ESCITALOPRAM OXALATE
  7. AUBAGIO [Suspect]
     Active Substance: TERIFLUNOMIDE
     Indication: MULTIPLE SCLEROSIS
     Route: 048

REACTIONS (3)
  - Diplopia [Unknown]
  - Fatigue [Unknown]
  - Alopecia [Unknown]
